FAERS Safety Report 6168662-9 (Version None)
Quarter: 2009Q2

REPORT INFORMATION
  Report Type: 
  Country: None (occurrence: None)
  Receive Date: 20090427
  Receipt Date: 20090423
  Transmission Date: 20091009
  Serious: Yes (Death, Hospitalization)
  Sender: FDA-Public Use
  Company Number: ES-ABBOTT-09P-144-0569533-00

PATIENT
  Age: 64 Year
  Sex: Female

DRUGS (9)
  1. HUMIRA [Suspect]
     Indication: RHEUMATOID ARTHRITIS
     Route: 058
     Dates: start: 20060101
  2. METHOTREXATE SODIUM [Concomitant]
     Indication: RHEUMATOID ARTHRITIS
     Route: 048
     Dates: start: 20050101
  3. DACORTIN [Concomitant]
     Indication: RHEUMATOID ARTHRITIS
     Route: 048
  4. PARACETAMOL [Concomitant]
     Indication: PAIN
     Route: 048
  5. CALCIO + VITAMINA D [Concomitant]
     Indication: OSTEOPOROSIS
     Route: 048
  6. OMEPRAZOL [Concomitant]
     Indication: PROPHYLAXIS AGAINST GASTROINTESTINAL ULCER
     Route: 048
  7. MOTILIUM [Concomitant]
     Indication: DRUG USE FOR UNKNOWN INDICATION
     Route: 048
  8. NEOSTIGMINA [Concomitant]
     Indication: MYASTHENIA GRAVIS
     Route: 048
  9. FORTEO [Concomitant]
     Indication: OSTEOPOROSIS
     Route: 065

REACTIONS (6)
  - ACUTE RESPIRATORY FAILURE [None]
  - COUGH [None]
  - DYSPNOEA [None]
  - ESCHERICHIA URINARY TRACT INFECTION [None]
  - INTERSTITIAL LUNG DISEASE [None]
  - PYREXIA [None]
